FAERS Safety Report 4664975-8 (Version None)
Quarter: 2005Q2

REPORT INFORMATION
  Report Type: 
  Country: None (occurrence: None)
  Receive Date: 20050517
  Receipt Date: 20050502
  Transmission Date: 20051028
  Serious: Yes (Other)
  Sender: FDA-Public Use
  Company Number: DE_050515819

PATIENT
  Age: 67 Year
  Sex: Female

DRUGS (10)
  1. GEMCITABINE HYDROCHLORIDE-IV (GEMCITABINE) [Suspect]
     Indication: HEPATIC NEOPLASM MALIGNANT
     Dosage: 1000 MG/M2 OTHER
     Route: 050
  2. METOCLOPRAMIDE [Concomitant]
  3. TROPISETRON [Concomitant]
  4. DEXAMETHASONE [Concomitant]
  5. CIPROFLOXACIN [Concomitant]
  6. METRONIDAZOLE [Concomitant]
  7. PETHIDINE [Concomitant]
  8. DOXORUBICIN HCL [Concomitant]
  9. CISPLATIN [Concomitant]
  10. SPHEREX (AMILOMER0 [Concomitant]

REACTIONS (9)
  - ANAEMIA [None]
  - ARTERIAL DISORDER [None]
  - CHOLESTASIS [None]
  - DRUG TOXICITY [None]
  - FLUSHING [None]
  - HEPATIC ARTERY OCCLUSION [None]
  - NEOPLASM PROGRESSION [None]
  - NEUTROPENIA [None]
  - THROMBOCYTOPENIA [None]
